FAERS Safety Report 13076013 (Version 1)
Quarter: 2016Q4

REPORT INFORMATION
  Report Type: Spontaneous
  Country: US (occurrence: US)
  Receive Date: 20161229
  Receipt Date: 20161229
  Transmission Date: 20170207
  Serious: Yes (Other)
  Sender: FDA-Public Use
  Company Number: None

PATIENT
  Age: 62 Year
  Sex: Female

DRUGS (1)
  1. IBRANCE [Suspect]
     Active Substance: PALBOCICLIB
     Indication: BREAST CANCER FEMALE
     Dosage: ONE CAPSULE QD ORAL X21 DAY THEN OFF 1 WEEK
     Route: 048
     Dates: start: 20160922

REACTIONS (4)
  - Hypoaesthesia [None]
  - Vision blurred [None]
  - Dyspepsia [None]
  - Migraine [None]

NARRATIVE: CASE EVENT DATE: 20161228
